FAERS Safety Report 7442324-X (Version None)
Quarter: 2011Q2

REPORT INFORMATION
  Report Type: 
  Country: None (occurrence: None)
  Receive Date: 20110428
  Receipt Date: 20110427
  Transmission Date: 20111010
  Serious: Yes (Death)
  Sender: FDA-Public Use
  Company Number: US-ABBOTT-11P-163-0721985-00

PATIENT
  Age: 88 Year
  Sex: Male

DRUGS (1)
  1. LUPRON [Suspect]
     Indication: PROSTATE CANCER
     Dates: start: 20060505, end: 20110309

REACTIONS (1)
  - DEATH [None]
